FAERS Safety Report 15978762 (Version 1)
Quarter: 2019Q1

REPORT INFORMATION
  Report Type: Spontaneous
  Country: PL (occurrence: PL)
  Receive Date: 20190219
  Receipt Date: 20190219
  Transmission Date: 20190418
  Serious: Yes (Hospitalization)
  Sender: FDA-Public Use
  Company Number: PL-GLAXOSMITHKLINE-PL2019GSK024285

PATIENT
  Age: 27 Year
  Sex: Male

DRUGS (2)
  1. FLUNARIZINE [Suspect]
     Active Substance: FLUNARIZINE
     Indication: MIGRAINE
     Dosage: UNK
  2. SUMATRIPTAN. [Suspect]
     Active Substance: SUMATRIPTAN
     Indication: MIGRAINE
     Dosage: UNK

REACTIONS (7)
  - Skin erosion [Recovered/Resolved]
  - Folliculitis [Recovered/Resolved]
  - Erythema [Unknown]
  - Skin disorder [Recovered/Resolved]
  - Pruritus [Recovered/Resolved]
  - Swelling [Recovered/Resolved]
  - Pityriasis lichenoides et varioliformis acuta [Recovered/Resolved]
